FAERS Safety Report 7028725-2 (Version None)
Quarter: 2010Q4

REPORT INFORMATION
  Report Type: 
  Country: None (occurrence: None)
  Receive Date: 20101004
  Receipt Date: 20101004
  Transmission Date: 20110411
  Serious: Yes (Hospitalization, Other)
  Sender: FDA-Public Use
  Company Number: None

PATIENT
  Weight: 114.3065 kg

DRUGS (1)
  1. LISINOPRIL [Suspect]
     Indication: BLOOD PRESSURE INCREASED
     Dosage: 1TAB DAILY PO
     Route: 048
     Dates: start: 20100609, end: 20100903

REACTIONS (7)
  - ANGIOEDEMA [None]
  - CHOLECYSTECTOMY [None]
  - CHOLELITHIASIS [None]
  - GASTRIC ULCER [None]
  - GASTROINTESTINAL DISORDER [None]
  - GASTROINTESTINAL INFLAMMATION [None]
  - HEPATIC STEATOSIS [None]
